FAERS Safety Report 23140594 (Version 3)
Quarter: 2023Q4

REPORT INFORMATION
  Report Type: Report from Study
  Country: CA (occurrence: CA)
  Receive Date: 20231103
  Receipt Date: 20231222
  Transmission Date: 20240110
  Serious: Yes (Other)
  Sender: FDA-Public Use
  Company Number: CA-JNJFOC-20230951115

PATIENT
  Age: 10 Year
  Sex: Male
  Weight: 40 kg

DRUGS (2)
  1. REMICADE [Suspect]
     Active Substance: INFLIXIMAB
     Indication: Crohn^s disease
     Dosage: EXPIRY: 31-MAR-2026?ON 26-OCT-2023, THE PATIENT HAD RECEIVED 16TH INFLIXIMAB INFUSION AT DOSE OF 200
     Route: 041
     Dates: start: 20220504
  2. REMICADE [Suspect]
     Active Substance: INFLIXIMAB
     Route: 041

REACTIONS (7)
  - Asthma [Not Recovered/Not Resolved]
  - Streptococcal infection [Recovered/Resolved]
  - Dark circles under eyes [Unknown]
  - Blood iron decreased [Unknown]
  - Fatigue [Unknown]
  - Abdominal pain [Unknown]
  - Diarrhoea [Unknown]

NARRATIVE: CASE EVENT DATE: 20230101
